FAERS Safety Report 10963211 (Version 2)
Quarter: 2015Q1

REPORT INFORMATION
  Report Type: Spontaneous
  Country: US (occurrence: US)
  Receive Date: 20150327
  Receipt Date: 20150330
  Transmission Date: 20150721
  Serious: No
  Sender: FDA-Public Use
  Company Number: US-009507513-1503USA011519

PATIENT
  Sex: Female

DRUGS (1)
  1. NEXPLANON [Suspect]
     Active Substance: ETONOGESTREL
     Indication: CONTRACEPTION
     Dosage: 68 MG
     Route: 059
     Dates: start: 20140728

REACTIONS (5)
  - Menstruation irregular [Unknown]
  - Medical device complication [Unknown]
  - Vaginal haemorrhage [Unknown]
  - Device dislocation [Unknown]
  - Weight decreased [Unknown]
